FAERS Safety Report 21419448 (Version 1)
Quarter: 2022Q4

REPORT INFORMATION
  Report Type: Report from Study
  Country: IT (occurrence: IT)
  Receive Date: 20221006
  Receipt Date: 20221006
  Transmission Date: 20230113
  Serious: Yes (Life-Threatening, Other)
  Sender: FDA-Public Use
  Company Number: IT-drreddys-LIT/ITL/22/0154924

PATIENT
  Age: 1 Month
  Sex: Male

DRUGS (6)
  1. AZACITIDINE [Suspect]
     Active Substance: AZACITIDINE
     Indication: Acute lymphocytic leukaemia
     Dosage: EVERY 21 DAYS FOR 4 CYCLES
     Route: 065
  2. AZACITIDINE [Suspect]
     Active Substance: AZACITIDINE
     Dosage: 3 COURSES OF AZACITIDINE 40 MG/M2 AND MAINTENANCE FOR 5 DAYS, EVERY 21 DAYS.
     Route: 065
  3. AZACITIDINE [Suspect]
     Active Substance: AZACITIDINE
     Dosage: EVERY 21 DAYS FOR 4 CYCLES
     Route: 065
  4. AZACITIDINE [Suspect]
     Active Substance: AZACITIDINE
     Dosage: EVERY 21 DAYS FOR 4 CYCLES
     Route: 065
  5. AZACITIDINE [Suspect]
     Active Substance: AZACITIDINE
     Dosage: EVERY 21 DAYS FOR 4 CYCLES
     Route: 065
  6. PREDNISONE [Concomitant]
     Active Substance: PREDNISONE
     Indication: Acute lymphocytic leukaemia
     Dosage: CYCLICAL. PREDNISONE WAS GIVEN WITH EACH CYCLE
     Route: 065

REACTIONS (3)
  - Pneumonia [Unknown]
  - Cytopenia [Unknown]
  - Off label use [Unknown]
